FAERS Safety Report 5089642-0 (Version None)
Quarter: 2006Q3

REPORT INFORMATION
  Report Type: 
  Country: None (occurrence: None)
  Receive Date: 20060822
  Receipt Date: 20060807
  Transmission Date: 20061208
  Serious: Yes (Hospitalization)
  Sender: FDA-Public Use
  Company Number: US200608002255

PATIENT
  Age: 46 Year
  Sex: Male

DRUGS (8)
  1. HUMALOG [Suspect]
     Indication: DIABETES MELLITUS INSULIN-DEPENDENT
  2. ILETIN [Suspect]
     Indication: DIABETES MELLITUS INSULIN-DEPENDENT
     Dates: start: 19640101
  3. ILETIN [Suspect]
     Indication: DIABETES MELLITUS INSULIN-DEPENDENT
     Dates: start: 19640101
  4. ILETIN [Suspect]
     Indication: DIABETES MELLITUS INSULIN-DEPENDENT
  5. LORAZEPAM [Concomitant]
  6. LANTUS [Concomitant]
  7. LISINORPIL (LISINOPRIL) [Concomitant]
  8. DILANTIN [Concomitant]

REACTIONS (10)
  - BACK PAIN [None]
  - BLOOD GLUCOSE DECREASED [None]
  - BLOOD GLUCOSE INCREASED [None]
  - DRUG INEFFECTIVE [None]
  - INTERVERTEBRAL DISC COMPRESSION [None]
  - PHARMACEUTICAL PRODUCT COMPLAINT [None]
  - READING DISORDER [None]
  - SENSORY LOSS [None]
  - THYROID DISORDER [None]
  - VERTEBRAL INJURY [None]
